FAERS Safety Report 21996409 (Version 10)
Quarter: 2024Q1

REPORT INFORMATION
  Report Type: Spontaneous
  Country: US (occurrence: US)
  Receive Date: 20230215
  Receipt Date: 20240201
  Transmission Date: 20240409
  Serious: No
  Sender: FDA-Public Use
  Company Number: US-PFIZER INC-PV202300027913

PATIENT
  Age: 60 Year
  Sex: Female

DRUGS (4)
  1. IBRANCE [Suspect]
     Active Substance: PALBOCICLIB
     Dosage: 125 MG
     Dates: start: 20230206, end: 202302
  2. IBRANCE [Suspect]
     Active Substance: PALBOCICLIB
     Dosage: 125 MG
     Dates: end: 202306
  3. IBRANCE [Suspect]
     Active Substance: PALBOCICLIB
     Dosage: 75 MG, CYCLIC ,TAKE 21 DAYS ON, 14
  4. ANASTROZOLE [Concomitant]
     Active Substance: ANASTROZOLE
     Dosage: UNK

REACTIONS (10)
  - Hot flush [Recovered/Resolved]
  - White blood cell count decreased [Unknown]
  - Nasopharyngitis [Unknown]
  - COVID-19 [Not Recovered/Not Resolved]
  - Diarrhoea [Recovered/Resolved]
  - Alopecia [Unknown]
  - Chills [Unknown]
  - White blood cell count increased [Unknown]
  - Red blood cell count decreased [Recovered/Resolved]
  - Off label use [Unknown]

NARRATIVE: CASE EVENT DATE: 20230101
